FAERS Safety Report 6201921-X (Version None)
Quarter: 2009Q2

REPORT INFORMATION
  Report Type: 
  Country: None (occurrence: None)
  Receive Date: 20090526
  Receipt Date: 20090518
  Transmission Date: 20091009
  Serious: Yes (Other)
  Sender: FDA-Public Use
  Company Number: PHHY2009BR19208

PATIENT
  Age: 46 Year
  Sex: Female
  Weight: 60 kg

DRUGS (1)
  1. FORASEQ [Suspect]
     Indication: BRONCHITIS
     Dosage: : 1 INHALATION OF EACH ACTIVE INGREDIENT PER DAY
     Dates: end: 20090517

REACTIONS (5)
  - ASTHENIA [None]
  - FATIGUE [None]
  - PRURITUS GENERALISED [None]
  - SWELLING FACE [None]
  - WHEEZING [None]
